FAERS Safety Report 4584376-0 (Version None)
Quarter: 2005Q1

REPORT INFORMATION
  Report Type: 
  Country: None (occurrence: None)
  Receive Date: 20050216
  Receipt Date: 20050209
  Transmission Date: 20050727
  Serious: Yes (Life-Threatening)
  Sender: FDA-Public Use
  Company Number: GB-BRISTOL-MYERS SQUIBB COMPANY-12855490

PATIENT
  Age: 69 Year
  Sex: Female
  Weight: 78 kg

DRUGS (8)
  1. CARBOPLATIN [Suspect]
     Indication: SMALL CELL LUNG CANCER STAGE UNSPECIFIED
     Route: 042
     Dates: start: 20041222, end: 20041222
  2. ATENOLOL [Concomitant]
     Indication: HYPERTENSION
     Route: 048
  3. ATENOLOL [Concomitant]
     Indication: MUSCLE SPASMS
     Route: 048
  4. QUININE SULFATE [Concomitant]
     Route: 048
     Dates: start: 20050107
  5. ORAMORPH SR [Concomitant]
     Indication: PAIN
     Route: 048
     Dates: start: 20041001
  6. ONDANSETRON [Concomitant]
     Indication: NAUSEA
     Route: 048
  7. DEXAMETHASONE [Concomitant]
     Indication: NAUSEA
     Route: 048
     Dates: start: 20041001
  8. GABAPENTIN [Concomitant]
     Indication: PAIN
     Route: 048
     Dates: start: 20050107

REACTIONS (1)
  - TOXIC EPIDERMAL NECROLYSIS [None]
